FAERS Safety Report 24765568 (Version 1)
Quarter: 2024Q4

REPORT INFORMATION
  Report Type: Spontaneous
  Country: US (occurrence: None)
  Receive Date: 20241220
  Receipt Date: 20241220
  Transmission Date: 20250115
  Serious: No
  Sender: Public
  Company Number: None

PATIENT
  Sex: 0

DRUGS (2)
  1. OXYBUTYNIN [Suspect]
     Active Substance: OXYBUTYNIN
  2. OXYBUTYNIN [Suspect]
     Active Substance: OXYBUTYNIN

REACTIONS (2)
  - Product substitution issue [None]
  - Product prescribing issue [None]

NARRATIVE: CASE EVENT DATE: 20241219
